FAERS Safety Report 8245721-8 (Version None)
Quarter: 2012Q1

REPORT INFORMATION
  Report Type: 
  Country: None (occurrence: None)
  Receive Date: 20120330
  Receipt Date: 20120322
  Transmission Date: 20120608
  Serious: No
  Sender: FDA-Public Use
  Company Number: US-BIOGENIDEC-2012BI010304

PATIENT
  Sex: Male

DRUGS (3)
  1. TYSABRI [Suspect]
     Indication: MULTIPLE SCLEROSIS
     Route: 042
     Dates: start: 20061120, end: 20071029
  2. TYSABRI [Suspect]
     Route: 042
     Dates: start: 20080825, end: 20100406
  3. TYSABRI [Suspect]
     Route: 042
     Dates: start: 20101012, end: 20120202

REACTIONS (2)
  - GENERAL SYMPTOM [None]
  - ASTHENIA [None]
